FAERS Safety Report 25705037 (Version 1)
Quarter: 2025Q3

REPORT INFORMATION
  Report Type: Spontaneous
  Country: US (occurrence: US)
  Receive Date: 20250820
  Receipt Date: 20250820
  Transmission Date: 20251021
  Serious: No
  Sender: LEGACY PHARMACEUTICAL PACKAGING
  Company Number: US-Allegis Pharmaceuticals, LLC-APL202501-000023

PATIENT

DRUGS (1)
  1. MOTOFEN [Suspect]
     Active Substance: ATROPINE SULFATE\DIFENOXIN HYDROCHLORIDE
     Indication: Diarrhoea
     Dosage: 1.025 MILLIGRAM, Q8H
     Route: 048

REACTIONS (2)
  - Product dose omission issue [Unknown]
  - Product availability issue [Unknown]
